FAERS Safety Report 8160063-7 (Version None)
Quarter: 2012Q1

REPORT INFORMATION
  Report Type: 
  Country: None (occurrence: None)
  Receive Date: 20120223
  Receipt Date: 20120221
  Transmission Date: 20120608
  Serious: No
  Sender: FDA-Public Use
  Company Number: US-BAYER-2012-017505

PATIENT
  Age: 52 Year
  Sex: Female

DRUGS (2)
  1. BETASERON [Suspect]
     Indication: MULTIPLE SCLEROSIS
     Dosage: .3 MG, QOD
     Route: 058
     Dates: start: 20100101
  2. BENADRYL [Concomitant]
     Indication: PREMEDICATION

REACTIONS (1)
  - SWELLING FACE [None]
